FAERS Safety Report 8235509-6 (Version None)
Quarter: 2012Q1

REPORT INFORMATION
  Report Type: 
  Country: None (occurrence: None)
  Receive Date: 20120322
  Receipt Date: 20120305
  Transmission Date: 20120608
  Serious: Yes (Other)
  Sender: FDA-Public Use
  Company Number: FK201200726

PATIENT
  Age: 37 Year
  Sex: Female

DRUGS (2)
  1. METHYLPREDNISOLONE [Suspect]
     Indication: SCLERODERMA
     Dosage: 500 MG/MONTH FOR 4 MONTHS, INTRAVENOUS (NOT OTHERWISE SPECIFIED)
     Route: 042
  2. CYCLOPHOSPHAMIDE [Suspect]
     Indication: SCLERODERMA

REACTIONS (5)
  - MAJOR DEPRESSION [None]
  - ADIPOSIS DOLOROSA [None]
  - THERAPEUTIC RESPONSE DECREASED [None]
  - TACHYCARDIA [None]
  - LICHEN MYXOEDEMATOSUS [None]
